FAERS Safety Report 8567889-6 (Version None)
Quarter: 2012Q3

REPORT INFORMATION
  Report Type: 
  Country: None (occurrence: None)
  Receive Date: 20120803
  Receipt Date: 20120725
  Transmission Date: 20120928
  Serious: Yes (Hospitalization)
  Sender: FDA-Public Use
  Company Number: US-BAXTER-2011BH016538

PATIENT
  Sex: Male
  Weight: 98 kg

DRUGS (52)
  1. ABT-263 [Suspect]
     Route: 048
     Dates: start: 20101214
  2. ONDANSETRON [Concomitant]
     Indication: PREMEDICATION
     Route: 065
     Dates: start: 20101117, end: 20101117
  3. ONDANSETRON [Concomitant]
     Route: 065
     Dates: start: 20101215, end: 20101217
  4. ACETAMINOPHEN [Concomitant]
     Indication: PREMEDICATION
     Route: 065
     Dates: start: 20111115, end: 20111116
  5. ACETAMINOPHEN [Concomitant]
     Route: 065
     Dates: start: 20110208, end: 20110208
  6. DIPHENHYDRAMINE HCL [Concomitant]
     Route: 065
     Dates: start: 20110308, end: 20110308
  7. DOZOL [Concomitant]
     Indication: INSOMNIA
     Route: 048
     Dates: start: 20100101
  8. CYCLOPHOSPHAMIDE [Suspect]
     Route: 042
     Dates: start: 20101117, end: 20101119
  9. FLUDARABINE PHOSPHATE [Suspect]
     Route: 042
     Dates: start: 20101117, end: 20101119
  10. RITUXIMAB [Suspect]
     Route: 042
     Dates: start: 20101115, end: 20101116
  11. ONDANSETRON [Concomitant]
     Indication: NAUSEA
     Route: 065
     Dates: start: 20101117, end: 20101117
  12. ONDANSETRON [Concomitant]
     Route: 065
     Dates: start: 20110111, end: 20110113
  13. ONDANSETRON [Concomitant]
     Route: 065
     Dates: start: 20110308, end: 20110310
  14. DIPHENHYDRAMINE HCL [Concomitant]
     Route: 065
     Dates: start: 20110405, end: 20110405
  15. LORAZEPAM [Concomitant]
     Indication: ANXIETY
     Route: 065
     Dates: start: 20110308
  16. ONDANSETRON [Concomitant]
     Route: 065
     Dates: start: 20101118, end: 20101118
  17. ONDANSETRON [Concomitant]
     Route: 065
     Dates: start: 20110405, end: 20110407
  18. ACETAMINOPHEN [Concomitant]
     Route: 065
     Dates: start: 20101215, end: 20101216
  19. ACETAMINOPHEN [Concomitant]
     Route: 065
     Dates: start: 20110308, end: 20110308
  20. PEGFILGRASTIM [Concomitant]
     Route: 065
     Dates: start: 20110311, end: 20110311
  21. ALLOPURINOL [Concomitant]
     Indication: PROPHYLAXIS
     Route: 065
     Dates: start: 20101114, end: 20101128
  22. DIPHENHYDRAMINE HCL [Concomitant]
     Route: 065
     Dates: start: 20110208, end: 20110208
  23. RANITIDINE [Concomitant]
     Route: 065
     Dates: start: 20110111, end: 20110111
  24. DEXAMETHASONE PHOSPHATE [Concomitant]
     Indication: PREMEDICATION
     Route: 065
     Dates: start: 20110111, end: 20110111
  25. DEXAMETHASONE PHOSPHATE [Concomitant]
     Route: 065
     Dates: start: 20110308, end: 20110308
  26. PEGFILGRASTIM [Concomitant]
     Indication: PROPHYLAXIS
     Route: 065
     Dates: start: 20110211, end: 20110211
  27. CANDESARTAN CILEXETIL [Concomitant]
     Indication: HYPERTENSION
     Route: 065
     Dates: start: 20091001
  28. FLUCONAZOLE [Concomitant]
     Indication: ANTIFUNGAL PROPHYLAXIS
     Route: 065
     Dates: start: 20101214
  29. ACETAMINOPHEN [Concomitant]
     Route: 065
     Dates: start: 20110111, end: 20110111
  30. RANITIDINE [Concomitant]
     Indication: PREMEDICATION
     Route: 065
     Dates: start: 20101115, end: 20101116
  31. ALBUTEROL SULATE [Concomitant]
     Indication: COUGH
     Dosage: 2 PUFF
     Route: 065
     Dates: start: 20101103, end: 20101114
  32. ACYCLOVIR [Concomitant]
     Dosage: 2 TABLETS
     Route: 065
     Dates: start: 20101130
  33. CYCLOPHOSPHAMIDE [Suspect]
     Route: 042
     Dates: start: 20110111
  34. PEGFILGRASTIM [Concomitant]
     Route: 065
     Dates: start: 20110408, end: 20110408
  35. HYDROCORTISONE [Concomitant]
     Indication: PREMEDICATION
     Route: 065
     Dates: start: 20101115, end: 20101116
  36. PROCHLORPERAZINE [Concomitant]
     Indication: NAUSEA
     Route: 065
     Dates: start: 20101117
  37. RITUXIMAB [Suspect]
     Route: 042
     Dates: start: 20101215
  38. ACETAMINOPHEN [Concomitant]
     Route: 065
     Dates: start: 20110405, end: 20110405
  39. RANITIDINE [Concomitant]
     Route: 065
     Dates: start: 20110308, end: 20110308
  40. ALUMINIUM CHLORIDE [Concomitant]
     Route: 061
     Dates: start: 20040101
  41. ABT-263 [Suspect]
     Route: 048
     Dates: start: 20101118, end: 20101120
  42. FLUDARABINE PHOSPHATE [Suspect]
     Route: 042
     Dates: start: 20101215
  43. ONDANSETRON [Concomitant]
     Route: 065
     Dates: start: 20101119, end: 20101119
  44. ONDANSETRON [Concomitant]
     Route: 065
     Dates: start: 20110208, end: 20110210
  45. DIPHENHYDRAMINE HCL [Concomitant]
     Indication: PREMEDICATION
     Route: 065
     Dates: start: 20101115, end: 20101116
  46. DIPHENHYDRAMINE HCL [Concomitant]
     Route: 065
     Dates: start: 20110111, end: 20110111
  47. RANITIDINE [Concomitant]
     Route: 065
     Dates: start: 20110405, end: 20110405
  48. DEXAMETHASONE PHOSPHATE [Concomitant]
     Route: 065
     Dates: start: 20110405, end: 20110405
  49. BACTRIM [Concomitant]
     Dosage: 1 TABLET
     Route: 065
     Dates: start: 20101128
  50. LOPERAMIDE HCL [Concomitant]
     Dosage: 1 TABLET
     Route: 065
     Dates: start: 20101117
  51. MAGNESIUM HYDROXIDE TAB [Concomitant]
     Indication: CONSTIPATION
     Dosage: 30 CC
     Route: 065
     Dates: start: 20101215
  52. ATORVASTATIN CALCIUM [Concomitant]
     Route: 065
     Dates: start: 20020101

REACTIONS (1)
  - PNEUMONIA [None]
